FAERS Safety Report 5362159-1 (Version None)
Quarter: 2007Q2

REPORT INFORMATION
  Report Type: 
  Country: None (occurrence: None)
  Receive Date: 20070619
  Receipt Date: 20070608
  Transmission Date: 20071010
  Serious: Yes (Life-Threatening, Hospitalization)
  Sender: FDA-Public Use
  Company Number: AU-ROCHE-461804

PATIENT
  Age: 30 Year
  Sex: Male
  Weight: 80.2 kg

DRUGS (7)
  1. VALIUM [Suspect]
     Indication: DRUG USE FOR UNKNOWN INDICATION
     Dosage: PATIENT SWALLOWED X49 5 MG TABS
     Route: 065
     Dates: start: 20060829
  2. VALIUM [Suspect]
     Route: 065
     Dates: start: 20060513
  3. PEG-INTERFERON ALFA 2A (RO 25-8310) [Suspect]
     Dosage: DATE OF LAST DOSE PRIOR TO SAE WAS REPORTED AS 24 AUG 2006
     Route: 058
     Dates: start: 20060519, end: 20060831
  4. ASPIRIN [Suspect]
     Indication: DRUG USE FOR UNKNOWN INDICATION
     Route: 065
  5. NICOTINE PATCHES [Concomitant]
     Dates: start: 20060629
  6. CITALOPRAM HYDROBROMIDE [Concomitant]
     Dates: start: 20060713
  7. VALTREX [Concomitant]

REACTIONS (2)
  - CHEST PAIN [None]
  - OVERDOSE [None]
